FAERS Safety Report 23781359 (Version 1)
Quarter: 2024Q2

REPORT INFORMATION
  Report Type: Spontaneous
  Country: US (occurrence: US)
  Receive Date: 20240425
  Receipt Date: 20240425
  Transmission Date: 20240716
  Serious: No
  Sender: FDA-Public Use
  Company Number: US-BRISTOL-MYERS SQUIBB COMPANY-2024-064531

PATIENT
  Sex: Male

DRUGS (1)
  1. REVLIMID [Suspect]
     Active Substance: LENALIDOMIDE
     Indication: Product used for unknown indication
     Dosage: FREQ: EVERY OTHER DAY AT BEDTIME

REACTIONS (4)
  - Drug intolerance [Unknown]
  - Off label use [Unknown]
  - Fatigue [Unknown]
  - Full blood count decreased [Not Recovered/Not Resolved]
